FAERS Safety Report 6999529-1 (Version None)
Quarter: 2010Q3

REPORT INFORMATION
  Report Type: 
  Country: None (occurrence: None)
  Receive Date: 20100920
  Receipt Date: 20070827
  Transmission Date: 20110219
  Serious: Yes (Other)
  Sender: FDA-Public Use
  Company Number: US-ASTRAZENECA-2006UW21814

PATIENT
  Sex: Female
  Weight: 69.9 kg

DRUGS (11)
  1. SEROQUEL [Suspect]
     Indication: SCHIZOPHRENIA
     Route: 048
     Dates: start: 20030612
  2. SEROQUEL [Suspect]
     Indication: BIPOLAR DISORDER
     Route: 048
     Dates: start: 20030612
  3. SEROQUEL [Suspect]
     Indication: DEPRESSION
     Route: 048
     Dates: start: 20030612
  4. SEROQUEL [Suspect]
     Route: 048
     Dates: start: 20030712
  5. SEROQUEL [Suspect]
     Route: 048
     Dates: start: 20030712
  6. SEROQUEL [Suspect]
     Route: 048
     Dates: start: 20030712
  7. PERCOCET [Concomitant]
     Dates: start: 20061007
  8. ALBUTEROL [Concomitant]
     Dates: start: 20061007
  9. ZOLOFT [Concomitant]
     Dates: start: 20031110
  10. ASPIRIN [Concomitant]
     Dosage: DAILY
     Dates: start: 20050906
  11. EFFEXOR [Concomitant]
     Dates: start: 20030712

REACTIONS (1)
  - DIABETIC COMA [None]
